FAERS Safety Report 20681446 (Version 1)
Quarter: 2022Q2

REPORT INFORMATION
  Report Type: Spontaneous
  Country: US (occurrence: US)
  Receive Date: 20220406
  Receipt Date: 20220406
  Transmission Date: 20220721
  Serious: Yes (Hospitalization, Other)
  Sender: FDA-Public Use
  Company Number: US-SANOFI-01045062

PATIENT
  Age: 90 Year
  Sex: Female

DRUGS (1)
  1. TOUJEO [Suspect]
     Active Substance: INSULIN GLARGINE
     Indication: Diabetes mellitus
     Dosage: 36 IU, QD
     Route: 058

REACTIONS (3)
  - Cardiac failure [Unknown]
  - Coronary artery disease [Unknown]
  - Hypoacusis [Unknown]

NARRATIVE: CASE EVENT DATE: 20211201
